FAERS Safety Report 5838773-3 (Version None)
Quarter: 2008Q3

REPORT INFORMATION
  Report Type: 
  Country: None (occurrence: None)
  Receive Date: 20080808
  Receipt Date: 20080730
  Transmission Date: 20090109
  Serious: Yes (Hospitalization, Other)
  Sender: FDA-Public Use
  Company Number: CA-ABBOTT-08P-028-0446380-00

PATIENT
  Sex: Male

DRUGS (2)
  1. LUPRON DEPOT [Suspect]
     Indication: PROSTATE CANCER
     Dates: start: 20051107
  2. ACETAMINOPHEN W/ CODEINE [Concomitant]
     Indication: DRUG USE FOR UNKNOWN INDICATION
     Dosage: 300 MG/30 MG 1-2 TABS Q 4 HOURS
     Route: 048

REACTIONS (8)
  - ABNORMAL BEHAVIOUR [None]
  - DROOLING [None]
  - FALL [None]
  - GROIN PAIN [None]
  - INCONTINENCE [None]
  - LETHARGY [None]
  - STARING [None]
  - UNRESPONSIVE TO STIMULI [None]
